FAERS Safety Report 6466158-8 (Version None)
Quarter: 2009Q4

REPORT INFORMATION
  Report Type: 
  Country: None (occurrence: None)
  Receive Date: 20091127
  Receipt Date: 20091120
  Transmission Date: 20100525
  Serious: No
  Sender: FDA-Public Use
  Company Number: 20085088

PATIENT
  Sex: Female

DRUGS (1)
  1. LIORESAL [Suspect]
     Indication: MUSCLE SPASTICITY
     Dosage: MCG, DAILY, INTRATHECAL SEE B
     Route: 037

REACTIONS (10)
  - ASTHENIA [None]
  - CELLULITIS [None]
  - COMPRESSION FRACTURE [None]
  - GRANULOMA [None]
  - INTERVERTEBRAL DISC PROTRUSION [None]
  - MEDICAL DEVICE COMPLICATION [None]
  - MUSCLE SPASMS [None]
  - PARAPARESIS [None]
  - SPINAL LIGAMENT OSSIFICATION [None]
  - SYRINGOMYELIA [None]
